FAERS Safety Report 8517261-X (Version None)
Quarter: 2012Q3

REPORT INFORMATION
  Report Type: 
  Country: None (occurrence: None)
  Receive Date: 20120718
  Receipt Date: 20120712
  Transmission Date: 20120928
  Serious: Yes (Life-Threatening, Hospitalization, Disabling, Other)
  Sender: FDA-Public Use
  Company Number: AU-PFIZER INC-2012146492

PATIENT
  Age: 31 Year
  Sex: Female

DRUGS (2)
  1. ZIPRASIDONE HYDROCHLORIDE [Suspect]
     Indication: BIPOLAR DISORDER
  2. ZIPRASIDONE HYDROCHLORIDE [Suspect]
     Indication: POSTPARTUM DEPRESSION
     Dosage: 20 MG, 2X/DAY (MORNING AND NIGHT)
     Route: 048
     Dates: start: 20120501, end: 20120101

REACTIONS (8)
  - CARDIAC DISORDER [None]
  - LOSS OF CONSCIOUSNESS [None]
  - ANAPHYLACTIC REACTION [None]
  - DYSPNOEA [None]
  - MENTAL DISORDER [None]
  - OFF LABEL USE [None]
  - TACHYCARDIA [None]
  - SWOLLEN TONGUE [None]
